FAERS Safety Report 4673370-7 (Version None)
Quarter: 2005Q2

REPORT INFORMATION
  Report Type: 
  Country: None (occurrence: None)
  Receive Date: 20050523
  Receipt Date: 20050513
  Transmission Date: 20051028
  Serious: Yes (Other)
  Sender: FDA-Public Use
  Company Number: DE-2005-006821

PATIENT
  Sex: Female

DRUGS (1)
  1. MIRENA [Suspect]
     Dosage: 20 MICROGRAM/DAY,CONT, INTRA-UTERINE
     Route: 015
     Dates: start: 20040930

REACTIONS (6)
  - ARTHRALGIA [None]
  - COLLAGEN DISORDER [None]
  - HYPERSENSITIVITY [None]
  - POLYARTHRITIS [None]
  - PREGNANCY [None]
  - THERAPEUTIC RESPONSE DECREASED [None]
